FAERS Safety Report 7270134-5 (Version None)
Quarter: 2011Q1

REPORT INFORMATION
  Report Type: 
  Country: None (occurrence: None)
  Receive Date: 20110125
  Receipt Date: 20110112
  Transmission Date: 20110831
  Serious: Yes (Disabling)
  Sender: FDA-Public Use
  Company Number: 2011-0044

PATIENT
  Age: 61 Year
  Sex: Male

DRUGS (6)
  1. DYSPORT [Suspect]
     Indication: MUSCLE SPASTICITY
     Dosage: 1000 UNITS (1000 UNITS,SINGLE CYCLE),INTRAMUSCULAR
     Route: 030
     Dates: start: 20101126, end: 20101126
  2. TRANSIPEG (MACRGOL) [Concomitant]
  3. TEGRETOL [Concomitant]
  4. FORADIL [Concomitant]
  5. BACLOFENE (BACLOFEN) [Concomitant]
  6. DALFAGAN (PARACETAMOL) [Concomitant]

REACTIONS (1)
  - ERECTILE DYSFUNCTION [None]
